FAERS Safety Report 9136808 (Version 4)
Quarter: 2014Q1

REPORT INFORMATION
  Report Type: Report from Study
  Country: IQ (occurrence: IQ)
  Receive Date: 20130304
  Receipt Date: 20140312
  Transmission Date: 20141002
  Serious: No
  Sender: FDA-Public Use
  Company Number: PHHY2012IQ065302

PATIENT
  Age: 51 Year
  Sex: Male

DRUGS (6)
  1. TASIGNA [Suspect]
     Indication: CHRONIC MYELOID LEUKAEMIA
     Dosage: 800 MG, QD, (PER DAY)
     Route: 048
     Dates: start: 20110601
  2. LORATADIN [Concomitant]
     Dosage: UNK
     Route: 048
  3. DIALON [Concomitant]
     Dosage: UNK
     Route: 048
  4. AMLODIPINE [Concomitant]
     Dosage: UNK
     Route: 048
  5. GLISIN [Concomitant]
     Dosage: UNK
     Route: 048
  6. INSULIN [Concomitant]
     Dosage: 25 U/L, PER 12 H

REACTIONS (4)
  - Rash [Not Recovered/Not Resolved]
  - Hyperglycaemia [Recovering/Resolving]
  - Anxiety [Not Recovered/Not Resolved]
  - Bone pain [Recovering/Resolving]
